FAERS Safety Report 8449176-X (Version None)
Quarter: 2012Q2

REPORT INFORMATION
  Report Type: 
  Country: None (occurrence: None)
  Receive Date: 20120619
  Receipt Date: 20120608
  Transmission Date: 20120825
  Serious: Yes (Other)
  Sender: FDA-Public Use
  Company Number: US-JNJFOC-20120515877

PATIENT
  Sex: Female
  Weight: 56.7 kg

DRUGS (4)
  1. PROPRANOLOL [Concomitant]
     Indication: ARRHYTHMIA
     Route: 065
  2. SIMPONI [Suspect]
     Indication: RHEUMATOID ARTHRITIS
     Route: 058
     Dates: start: 20120512
  3. SIMPONI [Suspect]
     Route: 058
     Dates: start: 20110901, end: 20120127
  4. SIMPONI [Suspect]
     Route: 058
     Dates: start: 20120327, end: 20120327

REACTIONS (9)
  - ANXIETY [None]
  - DIVERTICULITIS [None]
  - NERVOUSNESS [None]
  - ARTHRITIS [None]
  - DECREASED APPETITE [None]
  - MOOD SWINGS [None]
  - ABNORMAL LOSS OF WEIGHT [None]
  - COLITIS [None]
  - BACTERIAL DIARRHOEA [None]
